FAERS Safety Report 18372760 (Version 2)
Quarter: 2020Q4

REPORT INFORMATION
  Report Type: Spontaneous
  Country: BE (occurrence: BE)
  Receive Date: 20201012
  Receipt Date: 20201027
  Transmission Date: 20210114
  Serious: Yes (Other)
  Sender: FDA-Public Use
  Company Number: BE-LUPIN PHARMACEUTICALS INC.-2020-06876

PATIENT
  Sex: Female

DRUGS (6)
  1. COLCHICINE. [Concomitant]
     Active Substance: COLCHICINE
     Indication: SCHNITZLER^S SYNDROME
     Dosage: 1 MILLIGRAM, BID
     Route: 065
     Dates: start: 2013, end: 2019
  2. HYDROXYCHLOROQUINE [Suspect]
     Active Substance: HYDROXYCHLOROQUINE
     Indication: SCHNITZLER^S SYNDROME
     Dosage: UNK
     Route: 065
  3. METHOTREXATE. [Suspect]
     Active Substance: METHOTREXATE
     Indication: SCHNITZLER^S SYNDROME
     Dosage: UNK
     Route: 065
  4. DAPSONE. [Suspect]
     Active Substance: DAPSONE
     Indication: SCHNITZLER^S SYNDROME
     Dosage: UNK
     Route: 065
  5. PARACETAMOL [Concomitant]
     Active Substance: ACETAMINOPHEN
     Indication: SCHNITZLER^S SYNDROME
     Dosage: 1 GRAM, TID
     Route: 065
     Dates: start: 2015, end: 201912
  6. ANAKINRA [Concomitant]
     Active Substance: ANAKINRA
     Indication: SCHNITZLER^S SYNDROME
     Dosage: 100 MILLIGRAM, QD
     Route: 058
     Dates: start: 202002

REACTIONS (1)
  - Drug ineffective [Unknown]
